FAERS Safety Report 15094564 (Version 11)
Quarter: 2020Q1

REPORT INFORMATION
  Report Type: Report from Study
  Country: US (occurrence: US)
  Receive Date: 20180630
  Receipt Date: 20200121
  Transmission Date: 20200409
  Serious: Yes (Other)
  Sender: FDA-Public Use
  Company Number: US-TESARO, INC-US-2018TSO03072

PATIENT
  Age: 79 Year
  Sex: Female

DRUGS (7)
  1. NIRAPARIB [Suspect]
     Active Substance: NIRAPARIB
     Dosage: 100 MG, QD IN THE EVENINGS WITH/WITHOUT FOOD
     Route: 048
     Dates: start: 20180820
  2. NIRAPARIB [Suspect]
     Active Substance: NIRAPARIB
     Dosage: 100 MG, QPM WITH FOOD
     Route: 048
     Dates: start: 20190217
  3. NIRAPARIB [Suspect]
     Active Substance: NIRAPARIB
     Dosage: 100 MG, QPM WITH FOOD
     Route: 048
     Dates: start: 20190217
  4. NIRAPARIB [Suspect]
     Active Substance: NIRAPARIB
     Dosage: 200 MG, QD
     Route: 048
  5. NIRAPARIB [Suspect]
     Active Substance: NIRAPARIB
     Dosage: 100 MG, QD
     Route: 048
  6. NIRAPARIB [Suspect]
     Active Substance: NIRAPARIB
     Indication: OVARIAN CANCER
     Dosage: 200 MG, QD
     Route: 048
     Dates: start: 20180611
  7. NIRAPARIB [Suspect]
     Active Substance: NIRAPARIB
     Dosage: 100 MG, QD
     Route: 048

REACTIONS (25)
  - Constipation [Not Recovered/Not Resolved]
  - Respiratory tract infection [Unknown]
  - Abdominal rigidity [Not Recovered/Not Resolved]
  - Appendicitis [Unknown]
  - Pyrexia [Unknown]
  - Feeling abnormal [Recovering/Resolving]
  - Positron emission tomogram abnormal [Unknown]
  - Cough [Not Recovered/Not Resolved]
  - Drug intolerance [Unknown]
  - Underdose [Unknown]
  - Product dose omission [Unknown]
  - Therapeutic response unexpected [Not Recovered/Not Resolved]
  - Malaise [Not Recovered/Not Resolved]
  - Carbohydrate antigen 125 increased [Recovered/Resolved]
  - Immune system disorder [Unknown]
  - Infection [Not Recovered/Not Resolved]
  - Sneezing [Unknown]
  - Nausea [Not Recovered/Not Resolved]
  - Migraine [Not Recovered/Not Resolved]
  - Insomnia [Not Recovered/Not Resolved]
  - Nasopharyngitis [Not Recovered/Not Resolved]
  - Vomiting [Not Recovered/Not Resolved]
  - Dyspepsia [Not Recovered/Not Resolved]
  - Gastrointestinal pain [Not Recovered/Not Resolved]
  - Abdominal discomfort [Not Recovered/Not Resolved]

NARRATIVE: CASE EVENT DATE: 20180614
